FAERS Safety Report 4594645-6 (Version None)
Quarter: 2005Q1

REPORT INFORMATION
  Report Type: 
  Country: None (occurrence: None)
  Receive Date: 20050301
  Receipt Date: 20041118
  Transmission Date: 20050727
  Serious: No
  Sender: FDA-Public Use
  Company Number: US-BRISTOL-MYERS SQUIBB COMPANY-12769683

PATIENT
  Age: 59 Year
  Sex: Female
  Weight: 43 kg

DRUGS (9)
  1. ERBITUX [Suspect]
     Indication: GASTRIC CANCER
     Route: 042
     Dates: start: 20041103, end: 20041103
  2. ERBITUX [Suspect]
     Indication: OESOPHAGEAL CARCINOMA
     Route: 042
     Dates: start: 20041103, end: 20041103
  3. BENADRYL [Concomitant]
     Indication: PREMEDICATION
     Dates: start: 20041103, end: 20041103
  4. BENADRYL [Concomitant]
     Dates: start: 20041110, end: 20041110
  5. DECADRON [Concomitant]
     Indication: PREMEDICATION
     Dates: start: 20041103, end: 20041103
  6. ZOFRAN [Concomitant]
     Indication: PREMEDICATION
     Dates: start: 20041103, end: 20041103
  7. CELEBREX [Concomitant]
  8. FENTANYL [Concomitant]
     Route: 061
  9. HYDROMORPHONE [Concomitant]

REACTIONS (7)
  - ANAEMIA [None]
  - DEHYDRATION [None]
  - DERMATITIS EXFOLIATIVE [None]
  - NAUSEA [None]
  - PRURITUS [None]
  - THROAT TIGHTNESS [None]
  - VOMITING [None]
